FAERS Safety Report 7462302-4 (Version None)
Quarter: 2011Q2

REPORT INFORMATION
  Report Type: 
  Country: None (occurrence: None)
  Receive Date: 20110506
  Receipt Date: 20110406
  Transmission Date: 20111010
  Serious: Yes (Hospitalization, Other)
  Sender: FDA-Public Use
  Company Number: US-BAYER-2011-000441

PATIENT
  Age: 24 Year
  Sex: Female
  Weight: 120 kg

DRUGS (4)
  1. YAZ [Suspect]
     Indication: ACNE
     Dosage: UNK
     Route: 048
     Dates: start: 20060101
  2. VENTOLIN [Concomitant]
  3. ALBUTEROL [Concomitant]
  4. YASMIN [Suspect]
     Indication: ACNE
     Dosage: UNK
     Route: 048
     Dates: start: 20060101

REACTIONS (2)
  - PAIN [None]
  - PULMONARY EMBOLISM [None]
